FAERS Safety Report 11222690 (Version 3)
Quarter: 2015Q3

REPORT INFORMATION
  Report Type: Spontaneous
  Country: BR (occurrence: BR)
  Receive Date: 20150626
  Receipt Date: 20150928
  Transmission Date: 20151125
  Serious: No
  Sender: FDA-Public Use
  Company Number: PHHY2015BR077373

PATIENT
  Sex: Male

DRUGS (1)
  1. LEPONEX [Suspect]
     Active Substance: CLOZAPINE
     Indication: DEMENTIA ALZHEIMER^S TYPE
     Dosage: 0.5 DF (1/2 TABLET), QHS (EVERY NIGHT)
     Route: 065

REACTIONS (5)
  - Apathy [Unknown]
  - Feeding disorder [Unknown]
  - Agitation [Unknown]
  - Off label use [Unknown]
  - Drug ineffective [Unknown]
